FAERS Safety Report 6518740-7 (Version None)
Quarter: 2009Q4

REPORT INFORMATION
  Report Type: 
  Country: None (occurrence: None)
  Receive Date: 20091228
  Receipt Date: 20091218
  Transmission Date: 20100525
  Serious: Yes (Other)
  Sender: FDA-Public Use
  Company Number: US-JNJFOC-20091205101

PATIENT
  Age: 55 Year
  Sex: Male

DRUGS (1)
  1. REMICADE [Suspect]
     Indication: DIABETIC RETINAL OEDEMA
     Dosage: 0.5 MG/0.05ML
     Route: 050

REACTIONS (7)
  - ANTERIOR CHAMBER FIBRIN [None]
  - CATARACT [None]
  - INTRAOCULAR PRESSURE INCREASED [None]
  - OPTIC NERVE DISORDER [None]
  - VISUAL ACUITY REDUCED [None]
  - VITREOUS OPACITIES [None]
  - VITRITIS [None]
